FAERS Safety Report 9408928 (Version 1)
Quarter: 2013Q3

REPORT INFORMATION
  Report Type: Report from Study
  Country: FR (occurrence: FR)
  Receive Date: 20130719
  Receipt Date: 20130719
  Transmission Date: 20140515
  Serious: Yes (Life-Threatening, Other)
  Sender: FDA-Public Use
  Company Number: FR-BRISTOL-MYERS SQUIBB COMPANY-17300096

PATIENT
  Age: 50 Year
  Sex: Female

DRUGS (3)
  1. YERVOY [Suspect]
     Indication: MALIGNANT MELANOMA
     Dosage: 555MG ON 04DEC12
     Route: 042
     Dates: start: 20121204
  2. NEO-MERCAZOLE [Suspect]
     Route: 048
     Dates: start: 20121222, end: 20130114
  3. AVLOCARDYL [Concomitant]
     Indication: TACHYCARDIA
     Route: 048
     Dates: start: 20130103

REACTIONS (5)
  - Hepatocellular injury [Unknown]
  - Cholestasis [Unknown]
  - Agranulocytosis [Unknown]
  - Hyperthyroidism [Recovered/Resolved]
  - Invasive ductal breast carcinoma [Unknown]
